FAERS Safety Report 18933535 (Version 2)
Quarter: 2021Q1

REPORT INFORMATION
  Report Type: Spontaneous
  Country: US (occurrence: US)
  Receive Date: 20210224
  Receipt Date: 20210310
  Transmission Date: 20210420
  Serious: No
  Sender: FDA-Public Use
  Company Number: US-TEVA-2021-US-1884678

PATIENT
  Sex: Female

DRUGS (2)
  1. ESTRADIOL TEVA [Suspect]
     Active Substance: ESTRADIOL
     Indication: PROPHYLAXIS
     Dosage: 1 MILLIGRAM DAILY; START DATE: HAD TAKEN FOR SEVERAL YEARS
     Route: 065
     Dates: start: 2006
  2. ESTRADIOL TEVA [Suspect]
     Active Substance: ESTRADIOL
     Dosage: 1 MILLIGRAM DAILY;
     Route: 065

REACTIONS (7)
  - Middle insomnia [Recovered/Resolved]
  - Night sweats [Recovered/Resolved]
  - Insomnia [Recovered/Resolved]
  - Product substitution issue [Unknown]
  - Body temperature increased [Recovered/Resolved]
  - Drug ineffective [Unknown]
  - Flushing [Recovered/Resolved]

NARRATIVE: CASE EVENT DATE: 202011
